FAERS Safety Report 6207110-7 (Version None)
Quarter: 2009Q2

REPORT INFORMATION
  Report Type: 
  Country: None (occurrence: None)
  Receive Date: 20090522
  Receipt Date: 20080331
  Transmission Date: 20091009
  Serious: Yes (Hospitalization)
  Sender: FDA-Public Use
  Company Number: 555925

PATIENT
  Age: 24 Month
  Sex: Male

DRUGS (2)
  1. VALCYTE [Suspect]
     Indication: CYTOMEGALOVIRUS TEST
     Dosage: ORAL
     Route: 048
  2. GANCICLOVIR SODIUM [Suspect]
     Indication: CYTOMEGALOVIRUS TEST
     Dosage: INTRAVENOUS
     Route: 042

REACTIONS (2)
  - CYTOMEGALOVIRUS TEST POSITIVE [None]
  - PATHOGEN RESISTANCE [None]
